FAERS Safety Report 4422045-8 (Version None)
Quarter: 2004Q3

REPORT INFORMATION
  Report Type: 
  Country: None (occurrence: None)
  Receive Date: 20040712
  Receipt Date: 20030603
  Transmission Date: 20050211
  Serious: Yes (Hospitalization)
  Sender: FDA-Public Use
  Company Number: TAP2003Q01382

PATIENT
  Sex: Male

DRUGS (1)
  1. PREVACID [Suspect]
     Dosage: 30 MG, 1 IN 1 D, PER ORAL
     Route: 048

REACTIONS (2)
  - DIARRHOEA [None]
  - SERUM SEROTONIN INCREASED [None]
